FAERS Safety Report 23281105 (Version 1)
Quarter: 2023Q4

REPORT INFORMATION
  Report Type: Spontaneous
  Country: TR (occurrence: TR)
  Receive Date: 20231211
  Receipt Date: 20231211
  Transmission Date: 20240110
  Serious: Yes (Hospitalization, Other)
  Sender: FDA-Public Use
  Company Number: TR-PBT-008729

PATIENT
  Age: 63 Year
  Sex: Male

DRUGS (3)
  1. PRASUGREL [Suspect]
     Active Substance: PRASUGREL
     Indication: Vascular stent thrombosis
     Route: 048
  2. ASPIRIN [Concomitant]
     Active Substance: ASPIRIN
     Indication: Vascular stent thrombosis
     Route: 065
  3. PRASUGREL [Suspect]
     Active Substance: PRASUGREL
     Indication: Vascular stent thrombosis
     Route: 048

REACTIONS (1)
  - Drug-induced liver injury [Recovered/Resolved]
